FAERS Safety Report 20999316 (Version 1)
Quarter: 2022Q2

REPORT INFORMATION
  Report Type: Report from Study
  Country: CA (occurrence: CA)
  Receive Date: 20220623
  Receipt Date: 20220623
  Transmission Date: 20220721
  Serious: Yes (Other)
  Sender: FDA-Public Use
  Company Number: CA-PFIZER INC-202200845413

PATIENT
  Age: 8 Decade
  Sex: Female

DRUGS (3)
  1. METHOTREXATE SODIUM [Suspect]
     Active Substance: METHOTREXATE SODIUM
     Indication: Corneal epithelial downgrowth
     Dosage: 400 UG/0.1 ML
     Route: 031
  2. METHOTREXATE SODIUM [Suspect]
     Active Substance: METHOTREXATE SODIUM
     Dosage: LAST 2 DOSES WERE INTRACAMERAL
  3. METHOTREXATE SODIUM [Suspect]
     Active Substance: METHOTREXATE SODIUM
     Dosage: LAST TWO DOSES WERE INTRACAMERAL

REACTIONS (4)
  - Retinal pigment epitheliopathy [Unknown]
  - Angle closure glaucoma [Unknown]
  - Treatment failure [Unknown]
  - Dysphotopsia [Unknown]
